FAERS Safety Report 25726120 (Version 1)
Quarter: 2025Q3

REPORT INFORMATION
  Report Type: Spontaneous
  Country: CN (occurrence: CN)
  Receive Date: 20250826
  Receipt Date: 20250826
  Transmission Date: 20251021
  Serious: Yes (Other)
  Sender: BAXTER
  Company Number: None

PATIENT
  Age: 56 Year
  Sex: Female
  Weight: 70 kg

DRUGS (4)
  1. CYCLOPHOSPHAMIDE [Suspect]
     Active Substance: CYCLOPHOSPHAMIDE
     Indication: Breast cancer female
     Dosage: 1 G, QD
     Route: 041
     Dates: start: 20250724, end: 20250724
  2. SODIUM CHLORIDE [Suspect]
     Active Substance: SODIUM CHLORIDE
     Dosage: 100 ML, QD ST (0.9% INJECTION) (WITH CYCLOPHOSPHAMIDE)
     Route: 041
     Dates: start: 20250724, end: 20250724
  3. SODIUM CHLORIDE [Suspect]
     Active Substance: SODIUM CHLORIDE
     Dosage: 100 ML, QD ST (0.9% INJECTION) (WITH PIRARUBICIN HYDROCHLORIDE)
     Route: 041
     Dates: start: 20250724, end: 20250724
  4. PIRARUBICIN HYDROCHLORIDE [Suspect]
     Active Substance: PIRARUBICIN HYDROCHLORIDE
     Indication: Breast cancer female
     Dosage: 80 MG, QD
     Route: 041
     Dates: start: 20250724, end: 20250724

REACTIONS (2)
  - White blood cell count decreased [Recovering/Resolving]
  - Myelosuppression [Recovered/Resolved]

NARRATIVE: CASE EVENT DATE: 20250801
